FAERS Safety Report 5427273-0 (Version None)
Quarter: 2007Q3

REPORT INFORMATION
  Report Type: 
  Country: None (occurrence: None)
  Receive Date: 20070828
  Receipt Date: 20070817
  Transmission Date: 20080115
  Serious: Yes (Life-Threatening, Hospitalization)
  Sender: FDA-Public Use
  Company Number: JP-NOVOPROD-266332

PATIENT
  Sex: Female

DRUGS (1)
  1. PENFILL N CHU [Suspect]
     Indication: DRUG USE FOR UNKNOWN INDICATION
     Dosage: 1000 IU, UNK
     Dates: start: 20060903

REACTIONS (7)
  - ARRHYTHMIA [None]
  - BLOOD GLUCOSE DECREASED [None]
  - COLD SWEAT [None]
  - CONVULSION [None]
  - INTENTIONAL OVERDOSE [None]
  - LOSS OF CONSCIOUSNESS [None]
  - MALAISE [None]
